FAERS Safety Report 7376014-9 (Version None)
Quarter: 2011Q1

REPORT INFORMATION
  Report Type: 
  Country: None (occurrence: None)
  Receive Date: 20110325
  Receipt Date: 20110314
  Transmission Date: 20110831
  Serious: Yes (Death, Hospitalization)
  Sender: FDA-Public Use
  Company Number: US-BAXTER-2011BH005210

PATIENT
  Age: 31 Year
  Sex: Female

DRUGS (5)
  1. PS PRODUCT NOT LISTED [Concomitant]
     Indication: SYSTEMIC LUPUS ERYTHEMATOSUS
     Route: 065
  2. PS PRODUCT NOT LISTED [Concomitant]
     Indication: BLOOD PRESSURE MANAGEMENT
     Route: 065
  3. DIANEAL [Suspect]
     Route: 033
     Dates: end: 20100101
  4. DIANEAL [Suspect]
     Indication: PERITONEAL DIALYSIS
     Route: 033
     Dates: start: 20090101, end: 20100101
  5. DIANEAL [Suspect]
     Indication: PERITONEAL DIALYSIS
     Route: 033
     Dates: end: 20100101

REACTIONS (3)
  - VOMITING [None]
  - DEATH [None]
  - NAUSEA [None]
